FAERS Safety Report 5103661-7 (Version None)
Quarter: 2006Q3

REPORT INFORMATION
  Report Type: 
  Country: None (occurrence: None)
  Receive Date: 20060911
  Receipt Date: 20060911
  Transmission Date: 20061208
  Serious: Yes (Other)
  Sender: FDA-Public Use
  Company Number: None

PATIENT
  Age: 41 Year
  Sex: Female
  Weight: 81.6475 kg

DRUGS (1)
  1. TRICOR [Suspect]
     Indication: BLOOD TRIGLYCERIDES INCREASED
     Dosage: 45 MG 1 A DAY PO
     Route: 048
     Dates: start: 20060727, end: 20060729

REACTIONS (2)
  - PRURITUS [None]
  - RASH MACULAR [None]
